FAERS Safety Report 22275841 (Version 1)
Quarter: 2023Q2

REPORT INFORMATION
  Report Type: Spontaneous
  Country: JP (occurrence: JP)
  Receive Date: 20230502
  Receipt Date: 20230502
  Transmission Date: 20230722
  Serious: Yes (Other)
  Sender: FDA-Public Use
  Company Number: JP-BAUSCH-BL-2023-006610

PATIENT
  Age: 26 Year
  Sex: Female

DRUGS (5)
  1. IMIQUIMOD [Suspect]
     Active Substance: IMIQUIMOD
     Indication: Anogenital warts
     Dosage: ONCE DAILY, 3 TIMES/WEEK, FOR 4 WEEKS
     Route: 061
  2. IMIQUIMOD [Suspect]
     Active Substance: IMIQUIMOD
     Dosage: RE-ADMINISTERED
     Route: 061
  3. CALCIPOTRIENE [Concomitant]
     Active Substance: CALCIPOTRIENE
     Indication: Psoriatic arthropathy
     Route: 061
  4. BETAMETHASONE DIPROPIONATE [Concomitant]
     Active Substance: BETAMETHASONE DIPROPIONATE
     Indication: Psoriatic arthropathy
     Dosage: TCAL/BD
  5. APREMILAST [Concomitant]
     Active Substance: APREMILAST
     Indication: Psoriatic arthropathy
     Dosage: IN WEEK 3. INCREMENTAL DOSING WAS EMPLOYED, WITH THE DOSE SETTLING AT 30 MG DAILY

REACTIONS (1)
  - Psoriatic arthropathy [Recovering/Resolving]
